FAERS Safety Report 22624638 (Version 2)
Quarter: 2023Q2

REPORT INFORMATION
  Report Type: Other
  Country: RO (occurrence: RO)
  Receive Date: 20230621
  Receipt Date: 20230630
  Transmission Date: 20230721
  Serious: Yes (Life-Threatening, Hospitalization, Other)
  Sender: FDA-Public Use
  Company Number: None

PATIENT
  Age: 27 Year
  Sex: Female

DRUGS (11)
  1. PIPERACILLIN SODIUM\TAZOBACTAM SODIUM [Suspect]
     Active Substance: PIPERACILLIN SODIUM\TAZOBACTAM SODIUM
     Indication: Sepsis
     Dosage: UNK
     Route: 065
  2. PIPERACILLIN SODIUM\TAZOBACTAM SODIUM [Suspect]
     Active Substance: PIPERACILLIN SODIUM\TAZOBACTAM SODIUM
     Indication: Antibiotic therapy
  3. MEROPENEM [Suspect]
     Active Substance: MEROPENEM
     Indication: Antibiotic therapy
     Dosage: 1 GRAM, TID
     Route: 042
  4. DEXAMETHASONE [Suspect]
     Active Substance: DEXAMETHASONE
     Indication: Acute promyelocytic leukaemia
     Dosage: 16 MILLIGRAM, BID
     Route: 042
  5. DEXAMETHASONE [Suspect]
     Active Substance: DEXAMETHASONE
     Dosage: 2.5 MILLIGRAM/SQ. METER, BID
     Route: 042
  6. DEXAMETHASONE [Suspect]
     Active Substance: DEXAMETHASONE
     Dosage: 10 MILLIGRAM, BID
     Route: 042
  7. LINEZOLID [Suspect]
     Active Substance: LINEZOLID
     Indication: Antibiotic therapy
     Dosage: 600 MILLIGRAM, BID
     Route: 042
  8. TRETINOIN [Suspect]
     Active Substance: TRETINOIN
     Indication: Acute promyelocytic leukaemia
     Dosage: 25 MILLIGRAM/SQ. METER, BID, THE ATRA WAS REINTRODUCED ON THE 5TH DAY AFTER ADMISSION
     Route: 048
  9. TRETINOIN [Suspect]
     Active Substance: TRETINOIN
     Dosage: 45 MILLIGRAM/SQ. METER, BID, BID, ATRA WAS INTERRUPTED ON DAY 2
     Route: 048
  10. HYDROXYUREA [Suspect]
     Active Substance: HYDROXYUREA
     Indication: Acute promyelocytic leukaemia
     Dosage: 3 GRAM, QD (TOTAL OF 2 DAYS WAS INITIATED)
     Route: 065
  11. IDARUBICIN [Suspect]
     Active Substance: IDARUBICIN
     Indication: Acute promyelocytic leukaemia
     Dosage: 25 MILLIGRAM, Q2D, 2 DOSES IN TOTAL
     Route: 042

REACTIONS (6)
  - Abortion spontaneous [Recovered/Resolved]
  - Myopathy [Unknown]
  - Differentiation syndrome [Unknown]
  - Postpartum haemorrhage [Unknown]
  - Pancytopenia [Unknown]
  - Maternal exposure during pregnancy [Recovered/Resolved]
